FAERS Safety Report 4597115-4 (Version None)
Quarter: 2005Q1

REPORT INFORMATION
  Report Type: 
  Country: None (occurrence: None)
  Receive Date: 20050223
  Receipt Date: 20050210
  Transmission Date: 20050727
  Serious: Yes (Other)
  Sender: FDA-Public Use
  Company Number: 601702

PATIENT
  Age: 72 Year
  Sex: Female
  Weight: 49 kg

DRUGS (2)
  1. BUMINATE [Suspect]
     Indication: HYPOPROTEINAEMIA
     Dosage: 100 ML; BID; IJTRAVENOUS
     Route: 042
     Dates: start: 20041001, end: 20041001
  2. BOLHEAL [Concomitant]

REACTIONS (2)
  - HEPATITIS C [None]
  - INTESTINAL POLYP [None]
